FAERS Safety Report 11822605 (Version 1)
Quarter: 2015Q4

REPORT INFORMATION
  Report Type: Spontaneous
  Country: US (occurrence: US)
  Receive Date: 20151210
  Receipt Date: 20151210
  Transmission Date: 20160305
  Serious: No
  Sender: FDA-Public Use
  Company Number: US-JNJFOC-20150600463

PATIENT
  Sex: Female

DRUGS (9)
  1. IMBRUVICA [Suspect]
     Active Substance: IBRUTINIB
     Indication: PRODUCT USED FOR UNKNOWN INDICATION
     Route: 048
  2. VORICONAZOLE. [Concomitant]
     Active Substance: VORICONAZOLE
  3. PAROXETINE MESILATE [Concomitant]
     Active Substance: PAROXETINE MESYLATE
  4. RITUXAN [Concomitant]
     Active Substance: RITUXIMAB
  5. FAMCICLOVIR. [Concomitant]
     Active Substance: FAMCICLOVIR
  6. FOLIC ACID. [Concomitant]
     Active Substance: FOLIC ACID
  7. XANAX [Concomitant]
     Active Substance: ALPRAZOLAM
  8. LEVOFLOXACIN. [Concomitant]
     Active Substance: LEVOFLOXACIN
  9. BLACK COHOSH [Concomitant]
     Active Substance: BLACK COHOSH

REACTIONS (1)
  - Skin sensitisation [Unknown]
